FAERS Safety Report 16582070 (Version 10)
Quarter: 2020Q3

REPORT INFORMATION
  Report Type: Report from Study
  Country: JP (occurrence: JP)
  Receive Date: 20190717
  Receipt Date: 20200914
  Transmission Date: 20201102
  Serious: Yes (Hospitalization, Other)
  Sender: FDA-Public Use
  Company Number: PHJP2019JP008603

PATIENT
  Age: 10 Year
  Sex: Male

DRUGS (15)
  1. ILARIS [Suspect]
     Active Substance: CANAKINUMAB
     Dosage: 150 MG
     Route: 058
     Dates: start: 20190212
  2. EDIROL [Concomitant]
     Active Substance: ELDECALCITOL
     Indication: PRODUCT USED FOR UNKNOWN INDICATION
     Dosage: 0.75 UG
     Route: 065
     Dates: start: 20181025
  3. ILARIS [Suspect]
     Active Substance: CANAKINUMAB
     Dosage: 129 MG
     Route: 058
     Dates: start: 20180816
  4. ILARIS [Suspect]
     Active Substance: CANAKINUMAB
     Dosage: 142.5 MG
     Route: 058
     Dates: start: 20181120
  5. ILARIS [Suspect]
     Active Substance: CANAKINUMAB
     Dosage: 300 MG
     Route: 058
     Dates: start: 20190312
  6. ILARIS [Suspect]
     Active Substance: CANAKINUMAB
     Dosage: 300 MG
     Route: 058
     Dates: start: 20190411
  7. FAMOTIDINE. [Concomitant]
     Active Substance: FAMOTIDINE
     Indication: PRODUCT USED FOR UNKNOWN INDICATION
     Dosage: 20 MG
     Route: 048
     Dates: start: 20181018
  8. ILARIS [Suspect]
     Active Substance: CANAKINUMAB
     Dosage: 300 MG
     Route: 058
     Dates: start: 20190509, end: 20190509
  9. RELENZA [Concomitant]
     Active Substance: ZANAMIVIR
     Indication: PRODUCT USED FOR UNKNOWN INDICATION
     Dosage: 10 MG
     Route: 065
     Dates: start: 20190119, end: 20190128
  10. ILARIS [Suspect]
     Active Substance: CANAKINUMAB
     Dosage: 142.5 MG
     Route: 058
     Dates: start: 20190104
  11. ILARIS [Suspect]
     Active Substance: CANAKINUMAB
     Indication: STILL^S DISEASE
     Dosage: 121.5 MG
     Route: 058
     Dates: start: 20180712
  12. ILARIS [Suspect]
     Active Substance: CANAKINUMAB
     Dosage: 130.5 MG
     Route: 058
     Dates: start: 20180913
  13. ILARIS [Suspect]
     Active Substance: CANAKINUMAB
     Dosage: 130.5 MG
     Route: 058
     Dates: start: 20181025
  14. ILARIS [Suspect]
     Active Substance: CANAKINUMAB
     Dosage: 150 MG
     Route: 058
     Dates: start: 20190124
  15. CYCLOSPORINE. [Suspect]
     Active Substance: CYCLOSPORINE
     Indication: STILL^S DISEASE
     Dosage: 150 MG
     Route: 048
     Dates: start: 20181228

REACTIONS (18)
  - Blood fibrinogen decreased [Unknown]
  - Gastroenteritis [Recovering/Resolving]
  - Dental caries [Recovered/Resolved]
  - Coagulopathy [Unknown]
  - Bacterial infection [Recovered/Resolved]
  - Hepatic enzyme increased [Unknown]
  - Lymphadenopathy [Unknown]
  - Haemophagocytic lymphohistiocytosis [Recovered/Resolved]
  - Pyrexia [Unknown]
  - Cushingoid [Not Recovered/Not Resolved]
  - Headache [Unknown]
  - Nausea [Unknown]
  - Cytokine storm [Unknown]
  - Still^s disease [Unknown]
  - Impetigo [Recovering/Resolving]
  - Platelet count decreased [Unknown]
  - Cytopenia [Unknown]
  - Hypertrichosis [Not Recovered/Not Resolved]

NARRATIVE: CASE EVENT DATE: 20180913
